FAERS Safety Report 9894874 (Version 2)
Quarter: 2014Q1

REPORT INFORMATION
  Report Type: Spontaneous
  Country: LV (occurrence: LV)
  Receive Date: 20140213
  Receipt Date: 20140213
  Transmission Date: 20141002
  Serious: Yes (Other)
  Sender: FDA-Public Use
  Company Number: LV-GILEAD-2013-0089580

PATIENT
  Age: 72 Year
  Sex: Male
  Weight: 60 kg

DRUGS (8)
  1. AMBRISENTAN [Suspect]
     Indication: PULMONARY HYPERTENSION
     Dosage: 5 MG, UNK
     Route: 048
     Dates: start: 201311
  2. AMBRISENTAN [Suspect]
     Dosage: 2.5 UNK, UNK
     Route: 048
     Dates: end: 201312
  3. METOPROLOL [Concomitant]
     Indication: MYOCARDIAL ISCHAEMIA
     Dosage: 50MG PER DAY
     Route: 048
  4. METOPROLOL [Concomitant]
     Dosage: 50MG PER DAY
     Route: 048
  5. TORASEMIDE [Concomitant]
     Indication: PULMONARY ARTERIAL HYPERTENSION
     Dosage: 50MG PER DAY
     Route: 048
  6. TORASEMIDE [Concomitant]
     Dosage: 50MG PER DAY
     Route: 048
  7. SPIRONOLACTONE [Concomitant]
     Indication: PULMONARY ARTERIAL HYPERTENSION
     Dosage: 25MG PER DAY
     Route: 048
  8. SPIRONOLACTONE [Concomitant]
     Dosage: 25MG PER DAY
     Route: 048

REACTIONS (3)
  - Pulmonary hypertension [Recovering/Resolving]
  - Oedema peripheral [Recovering/Resolving]
  - Right ventricular failure [Recovering/Resolving]
